FAERS Safety Report 4450265-5 (Version None)
Quarter: 2004Q3

REPORT INFORMATION
  Report Type: 
  Country: None (occurrence: None)
  Receive Date: 20040914
  Receipt Date: 20040831
  Transmission Date: 20050211
  Serious: Yes (Life-Threatening)
  Sender: FDA-Public Use
  Company Number: 2004231444DE

PATIENT
  Age: 73 Year
  Sex: Female

DRUGS (3)
  1. AROMASIN [Suspect]
     Indication: BREAST CANCER
     Dosage: 25 MG, QD, ORAL
     Route: 048
     Dates: start: 20040801, end: 20040801
  2. ENOXAPARIN SODIUM [Concomitant]
  3. MARCUMAR [Concomitant]

REACTIONS (1)
  - PULMONARY EMBOLISM [None]
